FAERS Safety Report 11826427 (Version 2)
Quarter: 2015Q4

REPORT INFORMATION
  Report Type: Report from Study
  Country: US (occurrence: US)
  Receive Date: 20151211
  Receipt Date: 20151228
  Transmission Date: 20160305
  Serious: Yes (Other)
  Sender: FDA-Public Use
  Company Number: US-BAYER-2015-481923

PATIENT
  Age: 54 Year
  Sex: Male

DRUGS (1)
  1. STIVARGA [Suspect]
     Active Substance: REGORAFENIB
     Indication: COLON CANCER
     Dosage: 160 MG, QD
     Route: 048
     Dates: start: 20151121

REACTIONS (15)
  - Memory impairment [Recovering/Resolving]
  - Decreased appetite [None]
  - Malaise [None]
  - Nervousness [None]
  - Pruritus [None]
  - Skin discolouration [None]
  - Blood pressure increased [None]
  - Dry skin [None]
  - Fatigue [None]
  - Colon cancer [None]
  - Weight decreased [None]
  - Metastases to liver [None]
  - Blood urine present [None]
  - Ammonia increased [None]
  - Confusional state [None]

NARRATIVE: CASE EVENT DATE: 20151121
